FAERS Safety Report 5443899-2 (Version None)
Quarter: 2007Q3

REPORT INFORMATION
  Report Type: 
  Country: None (occurrence: None)
  Receive Date: 20070905
  Receipt Date: 20070822
  Transmission Date: 20080115
  Serious: No
  Sender: FDA-Public Use
  Company Number: US-BOEHRINGER INGELHEIM PHARMACEUTICALS, INC.-2007-BP-06304BP

PATIENT
  Age: 67 Year
  Sex: Female

DRUGS (9)
  1. SPIRIVA [Suspect]
     Indication: CHRONIC OBSTRUCTIVE PULMONARY DISEASE
     Route: 055
     Dates: start: 20050101, end: 20070501
  2. ADVAIR DISKUS 100/50 [Concomitant]
     Indication: CHRONIC OBSTRUCTIVE PULMONARY DISEASE
  3. ALBUTEROL [Concomitant]
     Indication: CHRONIC OBSTRUCTIVE PULMONARY DISEASE
  4. DIOVAN [Concomitant]
     Indication: BLOOD PRESSURE INCREASED
  5. CLONIDINE [Concomitant]
     Indication: BLOOD PRESSURE INCREASED
  6. CYMBALTA [Concomitant]
     Indication: DEPRESSION
  7. VITAMINS [Concomitant]
  8. TRAZODONE HCL [Concomitant]
  9. QUININE SULFATE [Concomitant]

REACTIONS (1)
  - DRUG INEFFECTIVE [None]
